FAERS Safety Report 23197959 (Version 2)
Quarter: 2023Q4

REPORT INFORMATION
  Report Type: Report from Study
  Country: TR (occurrence: None)
  Receive Date: 20231117
  Receipt Date: 20231205
  Transmission Date: 20240110
  Serious: Yes (Death, Hospitalization, Disabling)
  Sender: FDA-Public Use
  Company Number: TR-ROCHE-3163340

PATIENT
  Age: 64 Year
  Sex: Male
  Weight: 82 kg

DRUGS (28)
  1. ATEZOLIZUMAB [Suspect]
     Active Substance: ATEZOLIZUMAB
     Indication: Small cell lung cancer extensive stage
     Dosage: DOSE LAST STUDY DRUG ADMIN PRIOR AE AND SAE IS 1200 MG ON 04/AUG/2022
     Route: 041
     Dates: start: 20220804
  2. CARBOPLATIN [Suspect]
     Active Substance: CARBOPLATIN
     Indication: Small cell lung cancer extensive stage
     Dosage: DOSE LAST STUDY DRUG ADMIN PRIOR AE AND SAE IS 400 MG ON 04/AUG/2022
     Route: 042
     Dates: start: 20220804
  3. ETOPOSIDE [Suspect]
     Active Substance: ETOPOSIDE
     Indication: Small cell lung cancer extensive stage
     Dosage: DOSE LAST STUDY DRUG ADMIN PRIOR AE AND SAE IS 160 MG ON 06/AUG/2022. ETOPOSIDE ON DAYS 1, 2, AND 3
     Route: 042
     Dates: start: 20220804
  4. BELOC (TURKEY) [Concomitant]
     Indication: Hypertension
     Dates: start: 202111
  5. DELIX [Concomitant]
     Indication: Cardiac failure
     Dates: start: 202111
  6. CRESTOR [Concomitant]
     Active Substance: ROSUVASTATIN CALCIUM
     Indication: Cardiac failure
     Dates: start: 202111
  7. BRILINTA [Concomitant]
     Active Substance: TICAGRELOR
     Indication: Anticoagulant therapy
     Dates: start: 202111
  8. BRILINTA [Concomitant]
     Active Substance: TICAGRELOR
     Dates: start: 20220814, end: 20220814
  9. ASPIRIN [Concomitant]
     Active Substance: ASPIRIN
     Indication: Anticoagulant therapy
     Dates: start: 202111
  10. LEVEMIR [Concomitant]
     Active Substance: INSULIN DETEMIR
     Indication: Diabetes mellitus
     Dates: start: 20211116
  11. IPRATOM [Concomitant]
     Indication: Dyspnoea
     Dates: start: 20220814, end: 20220814
  12. BIEMEFRIN [Concomitant]
     Indication: Hypotension
     Dates: start: 20220814, end: 20220814
  13. ULCEZOL (TURKEY) [Concomitant]
     Dates: start: 20220814, end: 20220814
  14. FUROMID [Concomitant]
     Dates: start: 20220814, end: 20220814
  15. OKSAPAR [Concomitant]
     Dates: start: 20220814, end: 20220814
  16. SISTECS [Concomitant]
     Dates: start: 20220814, end: 20220814
  17. FRAVEN [Concomitant]
     Indication: White blood cell count decreased
     Dates: start: 20220814, end: 20220814
  18. CORTAIR [Concomitant]
     Indication: Dyspnoea
     Dates: start: 20220814, end: 20220814
  19. ADALAT [Concomitant]
     Active Substance: NIFEDIPINE
     Indication: Hypertension
     Dates: start: 20211116
  20. APIDRA [Concomitant]
     Active Substance: INSULIN GLULISINE
     Indication: Diabetes mellitus
     Dates: start: 20211116
  21. NORMOLOL (TURKIYE) [Concomitant]
     Dates: start: 20220814, end: 20220814
  22. TIPRAXIN [Concomitant]
     Indication: Infection
     Dates: start: 20220814, end: 20220814
  23. PAROL [Concomitant]
     Active Substance: ACETAMINOPHEN
     Indication: Pain
     Dates: start: 20220814, end: 20220814
  24. IPRABUL [Concomitant]
     Dates: start: 20220814, end: 20220814
  25. BIEMEFRIN [Concomitant]
     Dates: start: 20220814, end: 20220814
  26. ULCEZOL (TURKEY) [Concomitant]
     Dates: start: 20220814, end: 20220814
  27. FUROMID [Concomitant]
     Dates: start: 20220814, end: 20220814
  28. OKSAPAR [Concomitant]
     Dates: start: 20220814, end: 20220814

REACTIONS (6)
  - COVID-19 [Fatal]
  - Febrile neutropenia [Fatal]
  - Sepsis [Recovered/Resolved]
  - Platelet count decreased [Recovered/Resolved]
  - Haemoglobin decreased [Recovered/Resolved]
  - White blood cell count decreased [Recovered/Resolved]

NARRATIVE: CASE EVENT DATE: 20220814
